FAERS Safety Report 8609888-1 (Version None)
Quarter: 2012Q3

REPORT INFORMATION
  Report Type: 
  Country: None (occurrence: None)
  Receive Date: 20120821
  Receipt Date: 20120817
  Transmission Date: 20120928
  Serious: Yes (Death, Other)
  Sender: FDA-Public Use
  Company Number: CN-ROCHE-1103034

PATIENT
  Age: 12 Year
  Sex: Male
  Weight: 70 kg

DRUGS (1)
  1. MABTHERA [Suspect]
     Indication: BURKITT'S LYMPHOMA

REACTIONS (3)
  - DECREASED APPETITE [None]
  - DEATH [None]
  - URINARY BLADDER HAEMORRHAGE [None]
